FAERS Safety Report 21365438 (Version 5)
Quarter: 2024Q4

REPORT INFORMATION
  Report Type: Report from Study
  Country: AT (occurrence: AT)
  Receive Date: 20220922
  Receipt Date: 20241115
  Transmission Date: 20250114
  Serious: Yes (Death, Life-Threatening, Hospitalization, Disabling, Other)
  Sender: ABBVIE
  Company Number: None

PATIENT
  Age: 73 Year
  Sex: Male

DRUGS (12)
  1. HUMIRA [Suspect]
     Active Substance: ADALIMUMAB
     Indication: Colitis ulcerative
     Route: 058
     Dates: start: 20140303, end: 20190211
  2. JARDIANCE [Concomitant]
     Active Substance: EMPAGLIFLOZIN
     Indication: Type 2 diabetes mellitus
     Route: 048
     Dates: start: 201512, end: 202208
  3. OLEOVIT [Concomitant]
     Indication: Vitamin D deficiency
     Route: 048
     Dates: start: 201512, end: 202309
  4. PENTASA [Concomitant]
     Active Substance: MESALAMINE
     Indication: Colitis ulcerative
     Route: 048
     Dates: start: 201303, end: 202110
  5. LANTUS [Concomitant]
     Active Substance: INSULIN GLARGINE
     Indication: Type 2 diabetes mellitus
     Dosage: IU
     Route: 058
     Dates: start: 201302, end: 202102
  6. NOVORAPID [Concomitant]
     Active Substance: INSULIN ASPART
     Indication: Type 2 diabetes mellitus
     Dosage: TIME INTERVAL: 0.33333333 DAYS: ON DEMAND/IU
     Route: 058
     Dates: start: 2008, end: 202210
  7. FENOFIBRATE\SIMVASTATIN [Concomitant]
     Active Substance: FENOFIBRATE\SIMVASTATIN
     Indication: Hypercholesterolaemia
     Dosage: 145/40 MG
     Route: 048
     Dates: start: 201603, end: 202208
  8. TRESIBA [Concomitant]
     Active Substance: INSULIN DEGLUDEC
     Indication: Type 2 diabetes mellitus
     Dosage: ON DEMAND/IU
     Route: 058
     Dates: start: 202102, end: 202209
  9. EUTHYROX [Concomitant]
     Active Substance: LEVOTHYROXINE SODIUM
     Indication: Hypothyroidism
     Route: 048
     Dates: start: 202110, end: 202209
  10. PREDNISOLONE [Concomitant]
     Active Substance: PREDNISOLONE
     Indication: Colitis ulcerative
     Dosage: TAPERING
     Route: 048
     Dates: start: 202202, end: 202206
  11. AVASTIN [Concomitant]
     Active Substance: BEVACIZUMAB
     Indication: Hepatocellular carcinoma
     Dosage: 15 PER KG BODY WEIGH/MG
     Route: 041
     Dates: start: 20210422
  12. TECENTRIQ [Concomitant]
     Active Substance: ATEZOLIZUMAB
     Indication: Hepatocellular carcinoma
     Route: 041
     Dates: start: 20210422

REACTIONS (2)
  - Hepatocellular carcinoma [Fatal]
  - Liver abscess [Recovered/Resolved]

NARRATIVE: CASE EVENT DATE: 20190305
